FAERS Safety Report 5615817-5 (Version None)
Quarter: 2008Q1

REPORT INFORMATION
  Report Type: 
  Country: None (occurrence: None)
  Receive Date: 20080206
  Receipt Date: 20080128
  Transmission Date: 20080703
  Serious: Yes (Other)
  Sender: FDA-Public Use
  Company Number: IE-ASTRAZENECA-2008GB00167

PATIENT
  Sex: Male

DRUGS (4)
  1. CRESTOR [Suspect]
     Indication: BLOOD CHOLESTEROL INCREASED
     Route: 048
     Dates: start: 20061027, end: 20070608
  2. COVERSYL [Concomitant]
  3. ISTIN [Concomitant]
  4. ARCOXIA [Concomitant]

REACTIONS (1)
  - PAIN IN EXTREMITY [None]
